FAERS Safety Report 8916833 (Version 3)
Quarter: 2013Q1

REPORT INFORMATION
  Report Type: Spontaneous
  Country: US (occurrence: US)
  Receive Date: 20121120
  Receipt Date: 20130207
  Transmission Date: 20140127
  Serious: No
  Sender: FDA-Public Use
  Company Number: US-PFIZER INC-2012289547

PATIENT
  Age: 24 Year
  Sex: Male

DRUGS (2)
  1. PRISTIQ [Suspect]
     Dosage: UNK, 50 QD
  2. XANAX [Concomitant]
     Dosage: 0.5 QSH PRN

REACTIONS (2)
  - Parosmia [Unknown]
  - Malaise [Unknown]
